FAERS Safety Report 8032855-6 (Version None)
Quarter: 2012Q1

REPORT INFORMATION
  Report Type: 
  Country: None (occurrence: None)
  Receive Date: 20120110
  Receipt Date: 20120104
  Transmission Date: 20120608
  Serious: Yes (Other)
  Sender: FDA-Public Use
  Company Number: US-BAYER-2012-001544

PATIENT
  Age: 39 Year

DRUGS (3)
  1. ALEVE (CAPLET) [Suspect]
     Indication: ANALGESIC THERAPY
     Dosage: DAILY DOSE 1000 MG
     Route: 048
  2. PLAQUENIL [Concomitant]
  3. ALEVE (CAPLET) [Suspect]
     Indication: INFLAMMATION

REACTIONS (6)
  - REFLUX LARYNGITIS [None]
  - SINUS DISORDER [None]
  - ULCER [None]
  - WEIGHT INCREASED [None]
  - NASOPHARYNGITIS [None]
  - FATIGUE [None]
